FAERS Safety Report 8852758 (Version 1)
Quarter: 2012Q4

REPORT INFORMATION
  Report Type: 
  Country: US (occurrence: US)
  Receive Date: 20121022
  Receipt Date: 20121022
  Transmission Date: 20130627
  Serious: No
  Sender: FDA-Public Use
  Company Number: US-PFIZER INC-2011050900

PATIENT
  Age: 45 Year
  Sex: Female
  Weight: 91 kg

DRUGS (4)
  1. PREMARIN [Suspect]
     Indication: HORMONE REPLACEMENT THERAPY
     Dosage: 1.75 mg, 1x/day
  2. PREMARIN [Suspect]
     Dosage: 1.25 mg, daily
     Dates: end: 201209
  3. ZIAC [Concomitant]
     Indication: HYPERTENSION
     Dosage: one and a half tablets of 10 mg/6.25 mg daily
  4. NORVASC [Concomitant]
     Indication: HYPERTENSION
     Dosage: 10 mg, daily

REACTIONS (3)
  - Hot flush [Recovered/Resolved]
  - Emotional disorder [Not Recovered/Not Resolved]
  - Crying [Not Recovered/Not Resolved]
